FAERS Safety Report 12550264 (Version 1)
Quarter: 2016Q3

REPORT INFORMATION
  Report Type: Report from Study
  Country: BR (occurrence: BR)
  Receive Date: 20160712
  Receipt Date: 20160712
  Transmission Date: 20161109
  Serious: Yes (Other)
  Sender: FDA-Public Use
  Company Number: PHHY2016BR090984

PATIENT
  Sex: Male
  Weight: 90 kg

DRUGS (1)
  1. FORASEQ [Suspect]
     Active Substance: BUDESONIDE\FORMOTEROL FUMARATE
     Indication: DYSPNOEA
     Dosage: 1 DF, BID (FORMOTEROL FUMARATE:12/ BUDESONIDE 400 MCG)
     Route: 055

REACTIONS (3)
  - Intracranial aneurysm [Recovering/Resolving]
  - Brain oedema [Recovering/Resolving]
  - Product use issue [Unknown]
